FAERS Safety Report 23576650 (Version 1)
Quarter: 2024Q1

REPORT INFORMATION
  Report Type: Spontaneous
  Country: US (occurrence: None)
  Receive Date: 20240228
  Receipt Date: 20240228
  Transmission Date: 20240410
  Serious: Yes (Life-Threatening, Hospitalization, Other)
  Sender: FDA-Public Use
  Company Number: None

PATIENT
  Age: 75 Year
  Sex: Female
  Weight: 81.9 kg

DRUGS (1)
  1. YESCARTA [Suspect]
     Active Substance: AXICABTAGENE CILOLEUCEL
     Indication: Diffuse large B-cell lymphoma
     Dosage: 68 ML ONCE INTRAVENOUS
     Route: 042
     Dates: start: 20231227, end: 20231227

REACTIONS (6)
  - Cytokine release syndrome [None]
  - Headache [None]
  - Depressed level of consciousness [None]
  - Fall [None]
  - Immune effector cell-associated neurotoxicity syndrome [None]
  - Dysgraphia [None]

NARRATIVE: CASE EVENT DATE: 20240101
